FAERS Safety Report 9938410 (Version 1)
Quarter: 2014Q1

REPORT INFORMATION
  Report Type: Report from Study
  Country: US (occurrence: US)
  Receive Date: 20140303
  Receipt Date: 20140303
  Transmission Date: 20141002
  Serious: No
  Sender: FDA-Public Use
  Company Number: US-ABBVIE-13P-163-1031961-00

PATIENT
  Age: 73 Year
  Sex: Female

DRUGS (14)
  1. HUMIRA [Suspect]
     Indication: COLITIS ULCERATIVE
     Dates: start: 20121129, end: 20121129
  2. HUMIRA [Suspect]
     Dates: start: 20121220, end: 20121220
  3. HUMIRA [Suspect]
     Dates: start: 20130103
  4. INSULIN [Concomitant]
     Indication: PRODUCT USED FOR UNKNOWN INDICATION
     Dosage: 6MG AT MEALS
  5. HYDROCODONE [Concomitant]
     Indication: PAIN
     Dosage: 2 PILLS EVERY 6 HOURS
  6. LEVOTHYROXINE [Concomitant]
     Indication: THYROID DISORDER
     Dosage: 20MG DAILY
  7. LISINOPRIL [Concomitant]
     Indication: HYPERTENSION
  8. LIALDA [Concomitant]
     Indication: COLITIS ULCERATIVE
     Dosage: 2 TWICE DAILY
  9. CYMBALTA [Concomitant]
     Indication: DEPRESSION
     Dosage: ONE DAILY
  10. WELCHOL [Concomitant]
     Indication: PRODUCT USED FOR UNKNOWN INDICATION
     Dosage: 3 PILLS TWICE DAILY
  11. ROPRINIROLE [Concomitant]
     Indication: RESTLESS LEGS SYNDROME
     Dosage: ONE EVERY NIGHT
  12. OMEPRAZOLE [Concomitant]
     Indication: GASTROOESOPHAGEAL REFLUX DISEASE
     Dosage: 40MG DAILY
  13. VITAMIN D [Concomitant]
     Indication: PRODUCT USED FOR UNKNOWN INDICATION
     Dosage: DAILY
  14. VITAMIN C [Concomitant]
     Indication: PRODUCT USED FOR UNKNOWN INDICATION
     Dosage: DAILY

REACTIONS (3)
  - Arthralgia [Not Recovered/Not Resolved]
  - Arthralgia [Not Recovered/Not Resolved]
  - Arthropathy [Not Recovered/Not Resolved]
